FAERS Safety Report 5752342-5 (Version None)
Quarter: 2008Q2

REPORT INFORMATION
  Report Type: 
  Country: None (occurrence: None)
  Receive Date: 20080529
  Receipt Date: 20080523
  Transmission Date: 20081010
  Serious: Yes (Other)
  Sender: FDA-Public Use
  Company Number: US-BRISTOL-MYERS SQUIBB COMPANY-14203244

PATIENT
  Sex: Male

DRUGS (5)
  1. ERBITUX [Suspect]
  2. AVASTIN [Suspect]
  3. FOLINIC ACID [Suspect]
  4. FLUOROURACIL [Suspect]
  5. OXALIPLATIN [Suspect]

REACTIONS (1)
  - PNEUMONITIS [None]
